FAERS Safety Report 7774865-X (Version None)
Quarter: 2011Q3

REPORT INFORMATION
  Report Type: 
  Country: None (occurrence: None)
  Receive Date: 20110923
  Receipt Date: 20110921
  Transmission Date: 20111222
  Serious: No
  Sender: FDA-Public Use
  Company Number: US-TEVA-301898USA

PATIENT
  Sex: Female
  Weight: 52.21 kg

DRUGS (1)
  1. PROAIR HFA [Suspect]
     Route: 055
     Dates: start: 20090101

REACTIONS (2)
  - CHEST DISCOMFORT [None]
  - THROAT IRRITATION [None]
